FAERS Safety Report 8518403-2 (Version None)
Quarter: 2012Q3

REPORT INFORMATION
  Report Type: 
  Country: None (occurrence: None)
  Receive Date: 20120718
  Receipt Date: 20120707
  Transmission Date: 20120928
  Serious: No
  Sender: FDA-Public Use
  Company Number: CA-JNJFOC-20120704178

PATIENT
  Sex: Female

DRUGS (4)
  1. REMICADE [Suspect]
     Route: 042
     Dates: start: 20120709
  2. CITALOPRAM HYDROBROMIDE [Concomitant]
     Route: 065
  3. REMICADE [Suspect]
     Indication: COLITIS ULCERATIVE
     Route: 042
     Dates: start: 20091113
  4. ELAVIL [Concomitant]
     Route: 065

REACTIONS (3)
  - EAR INFECTION [None]
  - INFUSION RELATED REACTION [None]
  - PRURITUS [None]
